FAERS Safety Report 14900661 (Version 2)
Quarter: 2018Q2

REPORT INFORMATION
  Report Type: Spontaneous
  Country: US (occurrence: US)
  Receive Date: 20180516
  Receipt Date: 20180517
  Transmission Date: 20180711
  Serious: No
  Sender: FDA-Public Use
  Company Number: US-PFIZER INC-2018198580

PATIENT
  Sex: Female

DRUGS (1)
  1. HEMABATE [Suspect]
     Active Substance: CARBOPROST TROMETHAMINE
     Indication: POSTPARTUM HAEMORRHAGE
     Dosage: 250 UG, UNK
     Route: 030

REACTIONS (4)
  - Product quality issue [Unknown]
  - Injection site urticaria [Not Recovered/Not Resolved]
  - Poor quality drug administered [Unknown]
  - Skin reaction [Not Recovered/Not Resolved]
